FAERS Safety Report 6051702-5 (Version None)
Quarter: 2009Q1

REPORT INFORMATION
  Report Type: 
  Country: None (occurrence: None)
  Receive Date: 20090126
  Receipt Date: 20090115
  Transmission Date: 20090719
  Serious: Yes (Other)
  Sender: FDA-Public Use
  Company Number: US-ROCHE-608569

PATIENT
  Age: 53 Year
  Sex: Female

DRUGS (2)
  1. PEGASYS [Suspect]
     Indication: HEPATITIS C
     Dosage: FORM: PFS
     Route: 065
     Dates: start: 20080112
  2. REBETOL [Suspect]
     Indication: HEPATITIS C
     Route: 065
     Dates: start: 20080112

REACTIONS (2)
  - RESORPTION BONE INCREASED [None]
  - TOOTH DISORDER [None]
